FAERS Safety Report 16771064 (Version 1)
Quarter: 2019Q3

REPORT INFORMATION
  Report Type: Report from Study
  Country: HN (occurrence: HN)
  Receive Date: 20190904
  Receipt Date: 20190904
  Transmission Date: 20191005
  Serious: Yes (Death)
  Sender: FDA-Public Use
  Company Number: PHHY2019HN205459

PATIENT
  Age: 41 Year
  Sex: Male

DRUGS (1)
  1. VYMADA [Suspect]
     Active Substance: SACUBITRIL\VALSARTAN
     Indication: PRODUCT USED FOR UNKNOWN INDICATION
     Dosage: 100 MG, (49 MG OF SACUBITRIL AND 51 MG OF VALSARTAN), UNK
     Route: 065
     Dates: end: 20190504

REACTIONS (1)
  - Myocardial infarction [Fatal]
